FAERS Safety Report 24546866 (Version 1)
Quarter: 2024Q4

REPORT INFORMATION
  Report Type: Spontaneous
  Country: FR (occurrence: FR)
  Receive Date: 20241024
  Receipt Date: 20241024
  Transmission Date: 20250114
  Serious: Yes (Hospitalization)
  Sender: UCB
  Company Number: None

PATIENT
  Age: 50 Year
  Sex: Male
  Weight: 62 kg

DRUGS (2)
  1. KEPPRA [Suspect]
     Active Substance: LEVETIRACETAM
     Indication: Epilepsy
     Dosage: 1,500 MG, 2/DAY
     Route: 048
     Dates: end: 20240831
  2. VALPROATE SODIUM [Suspect]
     Active Substance: VALPROATE SODIUM
     Indication: Epilepsy
     Dosage: 750 MG, 2/DAY
     Route: 048
     Dates: end: 20240831

REACTIONS (3)
  - Dyskinesia [Recovered/Resolved]
  - Hyponatraemia [Recovered/Resolved]
  - Rhabdomyolysis [Recovered/Resolved]

NARRATIVE: CASE EVENT DATE: 20240701
